FAERS Safety Report 7632474-7 (Version None)
Quarter: 2011Q3

REPORT INFORMATION
  Report Type: 
  Country: None (occurrence: None)
  Receive Date: 20110725
  Receipt Date: 20100922
  Transmission Date: 20111222
  Serious: No
  Sender: FDA-Public Use
  Company Number: US-BRISTOL-MYERS SQUIBB COMPANY-15291701

PATIENT
  Age: 54 Year
  Sex: Male

DRUGS (2)
  1. COUMADIN [Suspect]
     Dosage: 1 DF= 3MG AND 4 MG ALTERNATIVELY
  2. DIGOXIN [Concomitant]
     Dosage: 1 DF = 0.25 UNIT NOS

REACTIONS (2)
  - PRURITUS [None]
  - ERYTHEMA [None]
